FAERS Safety Report 4635904-8 (Version None)
Quarter: 2005Q2

REPORT INFORMATION
  Report Type: 
  Country: None (occurrence: None)
  Receive Date: 20050415
  Receipt Date: 20050404
  Transmission Date: 20051028
  Serious: Yes (Hospitalization)
  Sender: FDA-Public Use
  Company Number: FR-BRISTOL-MYERS SQUIBB COMPANY-12927067

PATIENT
  Age: 34 Year
  Sex: Male

DRUGS (3)
  1. GLUCOPHAGE [Suspect]
     Route: 048
     Dates: start: 20000615
  2. DIAMICRON [Suspect]
     Route: 048
  3. ZYLORIC [Suspect]
     Route: 048

REACTIONS (4)
  - BLOOD CREATINE PHOSPHOKINASE INCREASED [None]
  - GENERAL PHYSICAL HEALTH DETERIORATION [None]
  - HYPOTHERMIA [None]
  - MUSCULAR WEAKNESS [None]
